FAERS Safety Report 24281579 (Version 1)
Quarter: 2024Q3

REPORT INFORMATION
  Report Type: Spontaneous
  Country: US (occurrence: US)
  Receive Date: 20240904
  Receipt Date: 20240904
  Transmission Date: 20241016
  Serious: Yes (Other)
  Sender: UROGEN PHARMA
  Company Number: US-UROGEN PHARMA LTD.-2024-UGN-000098

PATIENT

DRUGS (9)
  1. JELMYTO [Suspect]
     Active Substance: MITOMYCIN
     Indication: Transitional cell cancer of the renal pelvis and ureter
     Dosage: 8 MILLILITER (INSTILLATIONS)
     Route: 065
     Dates: start: 2024, end: 2024
  2. JELMYTO [Suspect]
     Active Substance: MITOMYCIN
     Dosage: 8 MILLILITER (INSTILLATIONS)
     Route: 065
     Dates: start: 2024, end: 2024
  3. JELMYTO [Suspect]
     Active Substance: MITOMYCIN
     Dosage: 8 MILLILITER (INSTILLATIONS)
     Route: 065
     Dates: start: 2024, end: 2024
  4. JELMYTO [Suspect]
     Active Substance: MITOMYCIN
     Dosage: 8 MILLILITER (INSTILLATIONS)
     Route: 065
     Dates: start: 2024, end: 2024
  5. JELMYTO [Suspect]
     Active Substance: MITOMYCIN
     Dosage: 8 MILLILITER (INSTILLATIONS)
     Route: 065
     Dates: start: 2024, end: 2024
  6. JELMYTO [Suspect]
     Active Substance: MITOMYCIN
     Dosage: 8 MILLILITER (INSTILLATIONS)
     Route: 065
     Dates: start: 2024, end: 2024
  7. JELMYTO [Suspect]
     Active Substance: MITOMYCIN
     Dosage: 8 MILLILITER (INSTILLATIONS)
     Route: 065
     Dates: start: 2024, end: 2024
  8. JELMYTO [Suspect]
     Active Substance: MITOMYCIN
     Dosage: 8 MILLILITER (INSTILLATIONS)
     Route: 065
     Dates: start: 2024, end: 2024
  9. JELMYTO [Suspect]
     Active Substance: MITOMYCIN
     Dosage: 8 MILLILITER (INSTILLATIONS)
     Route: 065
     Dates: start: 20240711, end: 20240711

REACTIONS (1)
  - Ureteric stenosis [Unknown]

NARRATIVE: CASE EVENT DATE: 20240711
